FAERS Safety Report 23986823 (Version 1)
Quarter: 2024Q2

REPORT INFORMATION
  Report Type: Spontaneous
  Country: US (occurrence: US)
  Receive Date: 20240618
  Receipt Date: 20240618
  Transmission Date: 20240715
  Serious: No
  Sender: FDA-Public Use
  Company Number: US-PFIZER INC-202400193339

PATIENT
  Age: 59 Year
  Sex: Female

DRUGS (1)
  1. TUKYSA [Suspect]
     Active Substance: TUCATINIB
     Dosage: 150 MG
     Dates: start: 20240523

REACTIONS (7)
  - Faeces soft [Unknown]
  - Dry skin [Unknown]
  - Eye pruritus [Unknown]
  - Lacrimation increased [Unknown]
  - Fatigue [Unknown]
  - Diarrhoea [Unknown]
  - Product dose omission in error [Unknown]
